APPROVED DRUG PRODUCT: DIAZEPAM
Active Ingredient: DIAZEPAM
Strength: 2MG
Dosage Form/Route: TABLET;ORAL
Application: A217843 | Product #001 | TE Code: AB
Applicant: AUROBINDO PHARMA LTD
Approved: Dec 14, 2023 | RLD: No | RS: No | Type: RX